FAERS Safety Report 6961348-X (Version None)
Quarter: 2010Q3

REPORT INFORMATION
  Report Type: 
  Country: None (occurrence: None)
  Receive Date: 20100901
  Receipt Date: 20100823
  Transmission Date: 20110219
  Serious: Yes (Hospitalization, Disabling, Other)
  Sender: FDA-Public Use
  Company Number: B0585649A

PATIENT
  Sex: Male
  Weight: 60 kg

DRUGS (8)
  1. VALTREX [Suspect]
     Indication: HERPES ZOSTER
     Dosage: 1000MG THREE TIMES PER DAY
     Route: 048
     Dates: start: 20090718, end: 20090721
  2. LOXONIN [Suspect]
     Indication: HERPES ZOSTER
     Route: 048
     Dates: start: 20090718, end: 20090721
  3. RUEFRIEN [Concomitant]
     Indication: HERPES ZOSTER
     Route: 048
     Dates: start: 20090718, end: 20090721
  4. AMARYL [Concomitant]
     Route: 048
  5. METHYCOBAL [Concomitant]
     Dosage: 1500MCG PER DAY
     Route: 048
  6. BLOPRESS [Concomitant]
     Dosage: 8MG PER DAY
     Route: 048
  7. ATELEC [Concomitant]
     Dosage: 10MG PER DAY
     Route: 048
  8. SALOBEL [Concomitant]
     Dosage: 100MG PER DAY
     Route: 048

REACTIONS (7)
  - ABNORMAL BEHAVIOUR [None]
  - CHEST PAIN [None]
  - ENCEPHALOPATHY [None]
  - MENTAL DISORDER [None]
  - NEUROSIS [None]
  - RENAL FAILURE ACUTE [None]
  - TOXIC ENCEPHALOPATHY [None]
